FAERS Safety Report 8895140 (Version 1)
Quarter: 2012Q4

REPORT INFORMATION
  Report Type: 
  Country: US (occurrence: US)
  Receive Date: 20121107
  Receipt Date: 20121107
  Transmission Date: 20130627
  Serious: No
  Sender: FDA-Public Use
  Company Number: US-AMGEN-USASP2011048970

PATIENT
  Age: 59 Year
  Weight: 49.89 kg

DRUGS (5)
  1. ENBREL [Suspect]
     Indication: PRODUCT USED FOR UNKNOWN INDICATION
     Dosage: 50 mg, qwk
  2. PLAQUENIL                          /00072602/ [Concomitant]
     Dosage: 200 mg, UNK
  3. PREDNISONE [Concomitant]
     Dosage: 1 mg, UNK
  4. CALCIUM [Concomitant]
     Dosage: 600 mg, UNK
  5. OMEGA 3                            /00931501/ [Concomitant]
     Dosage: 1000 mg, UNK

REACTIONS (1)
  - Micturition urgency [Unknown]
